FAERS Safety Report 4747437-9 (Version None)
Quarter: 2005Q3

REPORT INFORMATION
  Report Type: 
  Country: None (occurrence: None)
  Receive Date: 20050815
  Receipt Date: 20050425
  Transmission Date: 20060218
  Serious: No
  Sender: FDA-Public Use
  Company Number: USA050496534

PATIENT
  Age: 62 Year
  Sex: Male
  Weight: 82 kg

DRUGS (3)
  1. CIALIS [Suspect]
     Indication: ERECTILE DYSFUNCTION
     Dosage: 20 MG
     Dates: start: 20050422
  2. PRILOSEC (OMEPRAZOLE RATIOPHARM) [Concomitant]
  3. LISINOPRIL [Concomitant]

REACTIONS (2)
  - MUSCLE SPASMS [None]
  - NAUSEA [None]
